FAERS Safety Report 19217524 (Version 1)
Quarter: 2021Q2

REPORT INFORMATION
  Report Type: Spontaneous
  Country: US (occurrence: US)
  Receive Date: 20210505
  Receipt Date: 20210505
  Transmission Date: 20210717
  Serious: No
  Sender: FDA-Public Use
  Company Number: US-GLAXOSMITHKLINE-US2021095400

PATIENT
  Age: 68 Year
  Sex: Female

DRUGS (1)
  1. FLONASE ALLERGY RELIEF [Suspect]
     Active Substance: FLUTICASONE PROPIONATE
     Indication: SINUS DISORDER
     Dosage: UNK
     Dates: start: 20210428

REACTIONS (4)
  - Product label confusion [Unknown]
  - Product use in unapproved indication [Unknown]
  - Product confusion [Unknown]
  - Drug effective for unapproved indication [Unknown]
